FAERS Safety Report 12501941 (Version 1)
Quarter: 2016Q2

REPORT INFORMATION
  Report Type: Report from Study
  Country: BR (occurrence: BR)
  Receive Date: 20160627
  Receipt Date: 20160627
  Transmission Date: 20160815
  Serious: Yes (Death, Hospitalization)
  Sender: FDA-Public Use
  Company Number: BR-ABBVIE-16K-020-1660049-00

PATIENT
  Age: 21 Year
  Sex: Male

DRUGS (1)
  1. HUMIRA [Suspect]
     Active Substance: ADALIMUMAB
     Indication: ANKYLOSING SPONDYLITIS
     Route: 058
     Dates: start: 20150721

REACTIONS (7)
  - Cardio-respiratory arrest [Fatal]
  - Vomiting [Unknown]
  - Malaise [Unknown]
  - Asthenia [Unknown]
  - Aphasia [Unknown]
  - Syncope [Unknown]
  - Renal failure [Fatal]

NARRATIVE: CASE EVENT DATE: 20151113
